FAERS Safety Report 5145878-1 (Version None)
Quarter: 2006Q4

REPORT INFORMATION
  Report Type: 
  Country: None (occurrence: None)
  Receive Date: 20061106
  Receipt Date: 20061106
  Transmission Date: 20070319
  Serious: Yes (Disabling)
  Sender: FDA-Public Use
  Company Number: None

PATIENT
  Age: 8 Year
  Sex: Female
  Weight: 29.4838 kg

DRUGS (2)
  1. SUCRET        INSIGHT PHARMACEUTICALS [Suspect]
     Indication: ANTITUSSIVE THERAPY
     Dosage: 1 LOZENGE   ONCE  PO
     Route: 048
     Dates: start: 20061022, end: 20061022
  2. TYLENON COLD FOR CHILDREN [Concomitant]

REACTIONS (5)
  - DYSPNOEA [None]
  - FOREIGN BODY TRAUMA [None]
  - LARYNGEAL OBSTRUCTION [None]
  - MEDICATION ERROR [None]
  - PNEUMONIA [None]
